FAERS Safety Report 7409349-1 (Version None)
Quarter: 2011Q2

REPORT INFORMATION
  Report Type: 
  Country: None (occurrence: None)
  Receive Date: 20110412
  Receipt Date: 20110407
  Transmission Date: 20111010
  Serious: Yes (Hospitalization)
  Sender: FDA-Public Use
  Company Number: US-ABBOTT-11P-163-0717624-00

PATIENT
  Age: 55 Year
  Sex: Female

DRUGS (5)
  1. ZOFRAN [Concomitant]
     Indication: DEPRESSION
  2. ATIVAN [Concomitant]
     Indication: ANXIETY
  3. REMERON [Concomitant]
     Indication: DEPRESSION
  4. HUMIRA [Suspect]
     Indication: CROHN'S DISEASE
     Dates: start: 20101202
  5. SYNTHROID [Concomitant]
     Indication: HYPOTHYROIDISM

REACTIONS (7)
  - ABDOMINAL PAIN [None]
  - CROHN'S DISEASE [None]
  - VISION BLURRED [None]
  - VISUAL IMPAIRMENT [None]
  - DECREASED APPETITE [None]
  - NAUSEA [None]
  - VOMITING [None]
